FAERS Safety Report 9646529 (Version 2)
Quarter: 2013Q4

REPORT INFORMATION
  Report Type: Report from Study
  Country: US (occurrence: US)
  Receive Date: 20131025
  Receipt Date: 20131025
  Transmission Date: 20140711
  Serious: Yes (Other)
  Sender: FDA-Public Use
  Company Number: US-ABBVIE-11P-163-0842886-00

PATIENT
  Age: 73 Year
  Sex: Male
  Weight: 86.26 kg

DRUGS (38)
  1. HUMIRA 40 MG/0.8 ML PEN [Suspect]
     Indication: PSORIASIS
     Dates: start: 2004, end: 2008
  2. HUMIRA 40 MG/0.8 ML PEN [Suspect]
     Indication: PSORIATIC ARTHROPATHY
     Dates: end: 201103
  3. HUMIRA 40 MG/0.8 ML PEN [Suspect]
     Dates: start: 20110728, end: 20130723
  4. HUMIRA 40 MG/0.8 ML PEN [Suspect]
     Dosage: FOR FOUR WEEKS
     Dates: start: 20130927, end: 201310
  5. HUMIRA 40 MG/0.8 ML PEN [Suspect]
     Dates: start: 201310
  6. HUMIRA [Suspect]
     Indication: PSORIASIS
  7. METHOTREXATE [Concomitant]
     Indication: PSORIASIS
     Dosage: 3 TABS N TUESDAY/3-4 WEEKLY
  8. VITAMINS [Concomitant]
     Indication: VITAMIN SUPPLEMENTATION
  9. CRESTOR [Concomitant]
     Indication: BLOOD CHOLESTEROL INCREASED
  10. CRESTOR [Concomitant]
  11. UNKNOWN MEDICATION [Concomitant]
     Indication: HYPERTENSION
  12. AMLODIPINE BESYLATE [Concomitant]
     Indication: HYPERTENSION
  13. DIOVAN [Concomitant]
     Indication: HYPERTENSION
     Dosage: 160MG/12.5MG
  14. DIOVAN [Concomitant]
  15. ASPIRIN [Concomitant]
     Indication: MYOCARDIAL INFARCTION
  16. MULTIVITAMINS [Concomitant]
     Indication: PRODUCT USED FOR UNKNOWN INDICATION
     Dosage: DAILY
  17. MILK THISTLE [Concomitant]
     Indication: PRODUCT USED FOR UNKNOWN INDICATION
     Dosage: DAILY
  18. ESTER C [Concomitant]
     Indication: VITAMIN SUPPLEMENTATION
     Dosage: DAILY
  19. VITAMIN D3 [Concomitant]
     Indication: PRODUCT USED FOR UNKNOWN INDICATION
  20. VITAMIN D3 [Concomitant]
  21. FOLIC ACID WITH DHA [Concomitant]
     Indication: PRODUCT USED FOR UNKNOWN INDICATION
  22. FOLIC ACID WITH DHA [Concomitant]
  23. CO Q10 [Concomitant]
     Indication: PRODUCT USED FOR UNKNOWN INDICATION
  24. MAGNESIUM [Concomitant]
     Indication: PRODUCT USED FOR UNKNOWN INDICATION
  25. MAGNESIUM [Concomitant]
  26. RASBERRY KETONE [Concomitant]
     Indication: PRODUCT USED FOR UNKNOWN INDICATION
     Dosage: DAILY
  27. COL-RITE [Concomitant]
     Indication: CONSTIPATION
  28. AMLODIPINE [Concomitant]
     Indication: HYPERTENSION
  29. FOLIC ACID [Concomitant]
     Indication: PRODUCT USED FOR UNKNOWN INDICATION
  30. FISH OIL [Concomitant]
     Indication: PRODUCT USED FOR UNKNOWN INDICATION
  31. ZINC [Concomitant]
     Indication: PRODUCT USED FOR UNKNOWN INDICATION
  32. VITAMIN B12 [Concomitant]
     Indication: PRODUCT USED FOR UNKNOWN INDICATION
  33. VITAMIN B6 [Concomitant]
     Indication: PRODUCT USED FOR UNKNOWN INDICATION
  34. ONE A DAY MENS [Concomitant]
     Indication: PRODUCT USED FOR UNKNOWN INDICATION
  35. CITRACAL + D [Concomitant]
     Indication: PRODUCT USED FOR UNKNOWN INDICATION
     Dosage: 630MG WITH VITAMIN D 500IU DAILY
  36. TRIAZOLAM [Concomitant]
     Indication: PRODUCT USED FOR UNKNOWN INDICATION
  37. UNKNOWN VITAMINS [Concomitant]
     Indication: PRODUCT USED FOR UNKNOWN INDICATION
  38. UNKNOWN MEDICATION [Concomitant]
     Indication: BLOOD PRESSURE

REACTIONS (30)
  - Coronary artery occlusion [Recovered/Resolved]
  - Chest pain [Recovered/Resolved]
  - Drug ineffective [Not Recovered/Not Resolved]
  - Hepatic enzyme increased [Recovered/Resolved]
  - Fatigue [Not Recovered/Not Resolved]
  - Knee arthroplasty [Unknown]
  - Cardiac flutter [Not Recovered/Not Resolved]
  - Anxiety [Unknown]
  - Gingival bleeding [Unknown]
  - Injection site pain [Not Recovered/Not Resolved]
  - Injection site pain [Recovered/Resolved]
  - Pruritus [Not Recovered/Not Resolved]
  - Pruritus [Not Recovered/Not Resolved]
  - Memory impairment [Unknown]
  - Upper respiratory tract infection [Not Recovered/Not Resolved]
  - Sinusitis [Not Recovered/Not Resolved]
  - Psoriasis [Not Recovered/Not Resolved]
  - Dermatitis [Not Recovered/Not Resolved]
  - Injection site pain [Recovered/Resolved]
  - Injection site haemorrhage [Recovered/Resolved]
  - Injection site bruising [Not Recovered/Not Resolved]
  - Incorrect dose administered [Unknown]
  - Blood cholesterol increased [Unknown]
  - Hypertension [Unknown]
  - Gastrooesophageal reflux disease [Unknown]
  - Vomiting [Unknown]
  - Needle issue [Unknown]
  - Injection site pain [Not Recovered/Not Resolved]
  - Injection site haemorrhage [Not Recovered/Not Resolved]
  - Incorrect dose administered [Not Recovered/Not Resolved]
